FAERS Safety Report 5377058-9 (Version None)
Quarter: 2007Q2

REPORT INFORMATION
  Report Type: 
  Country: None (occurrence: None)
  Receive Date: 20070628
  Receipt Date: 20070628
  Transmission Date: 20071010
  Serious: No
  Sender: FDA-Public Use
  Company Number: None

PATIENT
  Sex: Female
  Weight: 73.4827 kg

DRUGS (2)
  1. ALTACE [Suspect]
     Indication: HYPERTENSION
     Dosage: 5MG QD PO
     Route: 048
     Dates: start: 20070206, end: 20070306
  2. ALTACE [Suspect]
     Indication: HYPERTENSION
     Dosage: 10MG QD PO
     Route: 048
     Dates: start: 20070307, end: 20070313

REACTIONS (4)
  - ARTHRALGIA [None]
  - ASTHENIA [None]
  - HEPATITIS TOXIC [None]
  - OEDEMA PERIPHERAL [None]
